FAERS Safety Report 5214463-5 (Version None)
Quarter: 2007Q1

REPORT INFORMATION
  Report Type: 
  Country: None (occurrence: None)
  Receive Date: 20070122
  Receipt Date: 20070122
  Transmission Date: 20070707
  Serious: Yes (Other)
  Sender: FDA-Public Use
  Company Number: None

PATIENT
  Sex: Female
  Weight: 96.6162 kg

DRUGS (1)
  1. GENERIC NULEV [Suspect]
     Indication: IRRITABLE BOWEL SYNDROME
     Dosage: ONCE  TID ( /2 AC)  PO
     Route: 048
     Dates: start: 20061017, end: 20061231

REACTIONS (1)
  - DIARRHOEA [None]
